FAERS Safety Report 16073774 (Version 1)
Quarter: 2019Q1

REPORT INFORMATION
  Report Type: Spontaneous
  Country: US (occurrence: US)
  Receive Date: 20190314
  Receipt Date: 20190314
  Transmission Date: 20190418
  Serious: No
  Sender: FDA-Public Use
  Company Number: US-EPIC PHARMA LLC-2018EPC00246

PATIENT
  Sex: Female

DRUGS (2)
  1. DEXTROAMPHETAMINE SULFATE. [Suspect]
     Active Substance: DEXTROAMPHETAMINE SULFATE
  2. OTHER AMPHETAMINE SALTS PRODUCTS (DEXTROAMPHETAMINE) [Suspect]
     Active Substance: DEXTROAMPHETAMINE

REACTIONS (2)
  - Hypersensitivity [Unknown]
  - Drug ineffective [Unknown]
